FAERS Safety Report 22637574 (Version 1)
Quarter: 2023Q2

REPORT INFORMATION
  Report Type: Spontaneous
  Country: SE (occurrence: SE)
  Receive Date: 20230626
  Receipt Date: 20230626
  Transmission Date: 20230722
  Serious: Yes (Hospitalization)
  Sender: FDA-Public Use
  Company Number: None

PATIENT
  Age: 82 Year
  Sex: Female

DRUGS (5)
  1. RAMIPRIL [Suspect]
     Active Substance: RAMIPRIL
     Indication: Cardiac failure
     Route: 065
     Dates: start: 202303
  2. BISOPROLOL [Suspect]
     Active Substance: BISOPROLOL
     Indication: Cardiac failure
     Dosage: FOR ACTIVE INGREDIENT BISOPROLOLFUMARAT THE STRENGTH IS 1.25 MILLIGRAM .FOR ACTIVE INGREDIENT BISOPR
     Route: 065
     Dates: start: 202303
  3. FUROSEMIDE [Suspect]
     Active Substance: FUROSEMIDE
     Indication: Cardiac failure
     Route: 065
     Dates: start: 202303
  4. VISIPAQUE [Suspect]
     Active Substance: IODIXANOL
     Indication: Product used for unknown indication
     Dosage: FOR ACTIVE INGREDIENT JOD THE STRENGTH IS 320 MILLIGRAM/MILLILITER .FOR ACTIVE INGREDIENT JODIXANOL
     Route: 065
     Dates: start: 20230304
  5. DAPAGLIFLOZIN [Suspect]
     Active Substance: DAPAGLIFLOZIN
     Indication: Cardiac failure
     Dosage: FOR ACTIVE INGREDIENT DAPAGLIFLOZINPROPANDIOLMONOHYDRAT THE STRENGTH IS 12.3 MILLIGRAM .FOR ACTIVE I
     Route: 065
     Dates: start: 202303

REACTIONS (1)
  - Prerenal failure [Recovering/Resolving]

NARRATIVE: CASE EVENT DATE: 20230301
